FAERS Safety Report 26082831 (Version 1)
Quarter: 2025Q4

REPORT INFORMATION
  Report Type: Spontaneous
  Country: US (occurrence: None)
  Receive Date: 20251123
  Receipt Date: 20251123
  Transmission Date: 20260118
  Serious: Yes (Disabling)
  Sender: FDA-CTU
  Company Number: None

PATIENT
  Age: 63 Year
  Sex: Female
  Weight: 78.75 kg

DRUGS (6)
  1. ZYRTEC [Suspect]
     Active Substance: CETIRIZINE HYDROCHLORIDE
     Indication: Multiple allergies
     Dosage: 500 TABLET(S) DAILY ORAL
     Route: 048
     Dates: start: 20250528, end: 20251005
  2. ALLERGY MEDICINE [Concomitant]
     Active Substance: DIPHENHYDRAMINE HYDROCHLORIDE
  3. MELATONIN [Concomitant]
     Active Substance: MELATONIN
  4. DIETARY SUPPLEMENT [Concomitant]
     Active Substance: DIETARY SUPPLEMENT
  5. potassium gummies [Concomitant]
  6. LORATADINE [Concomitant]
     Active Substance: LORATADINE

REACTIONS (3)
  - Withdrawal syndrome [None]
  - Pruritus [None]
  - Therapy change [None]

NARRATIVE: CASE EVENT DATE: 20251025
